FAERS Safety Report 8357644-4 (Version None)
Quarter: 2012Q2

REPORT INFORMATION
  Report Type: 
  Country: None (occurrence: None)
  Receive Date: 20120514
  Receipt Date: 20120509
  Transmission Date: 20120825
  Serious: No
  Sender: FDA-Public Use
  Company Number: US-BAYER-2012-046418

PATIENT

DRUGS (2)
  1. NAPROXEN SODIUM [Suspect]
     Dosage: UNK
     Route: 048
     Dates: start: 20120508
  2. NAPROXEN SODIUM [Suspect]
     Dosage: UNK
     Dates: start: 20120508

REACTIONS (1)
  - DIZZINESS [None]
